FAERS Safety Report 8439335-4 (Version None)
Quarter: 2012Q2

REPORT INFORMATION
  Report Type: 
  Country: None (occurrence: None)
  Receive Date: 20120615
  Receipt Date: 20120612
  Transmission Date: 20120825
  Serious: Yes (Death, Other)
  Sender: FDA-Public Use
  Company Number: PHHY2011CA42064

PATIENT
  Sex: Male

DRUGS (2)
  1. CHEMOTHERAPEUTICS [Suspect]
     Dosage: UNK UKN, UNK
  2. ZOMETA [Suspect]
     Indication: RENAL CELL CARCINOMA
     Dosage: 3.5 MG, EVERY 8 WEEKS
     Route: 042
     Dates: start: 20110511, end: 20120508

REACTIONS (13)
  - RENAL CELL CARCINOMA [None]
  - ASCITES [None]
  - WEIGHT DECREASED [None]
  - OEDEMA PERIPHERAL [None]
  - BLOOD PRESSURE INCREASED [None]
  - PAIN [None]
  - LOWER LIMB FRACTURE [None]
  - JOINT SWELLING [None]
  - HYPOAESTHESIA [None]
  - SPINAL PAIN [None]
  - HYPERSENSITIVITY [None]
  - DYSPNOEA [None]
  - PAIN IN EXTREMITY [None]
